FAERS Safety Report 9984032 (Version 1)
Quarter: 2014Q1

REPORT INFORMATION
  Report Type: Report from Study
  Country: US (occurrence: US)
  Receive Date: 20140307
  Receipt Date: 20140307
  Transmission Date: 20141002
  Serious: No
  Sender: FDA-Public Use
  Company Number: US-ABBVIE-13P-163-1183133-00

PATIENT
  Age: 26 Year
  Sex: Female

DRUGS (16)
  1. HUMIRA [Suspect]
     Indication: COLITIS ULCERATIVE
     Dosage: NO LOADING DOSE
     Dates: start: 20131203
  2. VENLAFAXINE [Concomitant]
     Indication: ANXIETY
  3. VENLAFAXINE [Concomitant]
     Indication: DEPRESSION
  4. CATAPLEX A-C-P [Concomitant]
     Indication: GASTROINTESTINAL INFLAMMATION
  5. CATAPLEX A-C-P [Concomitant]
     Indication: IMPAIRED HEALING
  6. DERMATROPHINE PMG [Concomitant]
     Indication: IMPAIRED HEALING
     Dosage: THREE TABLETS
  7. DERMATROPHINE PMG [Concomitant]
     Indication: GASTROINTESTINAL INFLAMMATION
  8. CHLOROPHYLL COMPLEX [Concomitant]
     Indication: IMPAIRED HEALING
  9. CHLOROPHYLL COMPLEX [Concomitant]
     Indication: GASTROINTESTINAL INFLAMMATION
  10. ENZYCORE [Concomitant]
     Indication: IMPAIRED HEALING
  11. ENZYCORE [Concomitant]
     Indication: GASTROINTESTINAL INFLAMMATION
  12. PROSYNBIOTIC [Concomitant]
     Indication: IMPAIRED HEALING
  13. PROSYNBIOTIC [Concomitant]
     Indication: GASTROINTESTINAL INFLAMMATION
  14. MVI [Concomitant]
     Indication: VITAMIN SUPPLEMENTATION
  15. VITAMIN C [Concomitant]
     Indication: PRODUCT USED FOR UNKNOWN INDICATION
  16. PREDNISONE [Concomitant]
     Indication: PRODUCT USED FOR UNKNOWN INDICATION

REACTIONS (4)
  - Lymphadenopathy [Not Recovered/Not Resolved]
  - Lymph node pain [Not Recovered/Not Resolved]
  - Abdominal tenderness [Not Recovered/Not Resolved]
  - Arthralgia [Not Recovered/Not Resolved]
